FAERS Safety Report 12945093 (Version 2)
Quarter: 2017Q4

REPORT INFORMATION
  Report Type: Spontaneous
  Country: GB (occurrence: GB)
  Receive Date: 20161115
  Receipt Date: 20171130
  Transmission Date: 20180320
  Serious: Yes (Hospitalization, Other)
  Sender: FDA-Public Use
  Company Number: GB-MYLANLABS-2016M1040985

PATIENT
  Age: 56 Year
  Sex: Male

DRUGS (3)
  1. CLOZARIL [Suspect]
     Active Substance: CLOZAPINE
     Dosage: UNK
     Route: 048
     Dates: start: 20170111
  2. CLOZARIL [Suspect]
     Active Substance: CLOZAPINE
     Indication: SCHIZOPHRENIA
     Dosage: UNK
     Route: 048
     Dates: start: 20130214
  3. CLOZARIL [Suspect]
     Active Substance: CLOZAPINE
     Dosage: UNK
     Route: 048
     Dates: start: 20140127

REACTIONS (7)
  - Haemoglobin increased [Recovering/Resolving]
  - Differential white blood cell count abnormal [Not Recovered/Not Resolved]
  - Pneumonia [Recovered/Resolved]
  - Platelet count decreased [Recovering/Resolving]
  - Decubitus ulcer [Recovering/Resolving]
  - Sepsis [Recovered/Resolved]
  - Infected skin ulcer [Unknown]

NARRATIVE: CASE EVENT DATE: 20130328
